FAERS Safety Report 6933145-2 (Version None)
Quarter: 2010Q3

REPORT INFORMATION
  Report Type: 
  Country: None (occurrence: None)
  Receive Date: 20100820
  Receipt Date: 20100812
  Transmission Date: 20110219
  Serious: Yes (Hospitalization)
  Sender: FDA-Public Use
  Company Number: US-BIOGENIDEC-2009BI003602

PATIENT
  Age: 49 Year
  Sex: Female
  Weight: 77 kg

DRUGS (4)
  1. TYSABRI [Suspect]
     Indication: MULTIPLE SCLEROSIS
     Route: 042
     Dates: start: 20080611
  2. FIORICET [Concomitant]
     Indication: MIGRAINE
  3. PERCOCET [Concomitant]
     Indication: MIGRAINE
  4. PHENERGAN [Concomitant]
     Indication: NAUSEA

REACTIONS (7)
  - ASTHENIA [None]
  - FATIGUE [None]
  - LOSS OF CONSCIOUSNESS [None]
  - MEMORY IMPAIRMENT [None]
  - MIGRAINE [None]
  - SCIATICA [None]
  - SNORING [None]
